FAERS Safety Report 4698922-X (Version None)
Quarter: 2005Q2

REPORT INFORMATION
  Report Type: 
  Country: None (occurrence: None)
  Receive Date: 20050624
  Receipt Date: 20050614
  Transmission Date: 20051028
  Serious: Yes (Hospitalization)
  Sender: FDA-Public Use
  Company Number: JP-JNJFOC-20041008373

PATIENT
  Sex: Female
  Weight: 43 kg

DRUGS (22)
  1. REMICADE [Suspect]
     Route: 042
  2. REMICADE [Suspect]
     Indication: RHEUMATOID ARTHRITIS
     Route: 042
  3. RHEUMATREX [Suspect]
     Indication: RHEUMATOID ARTHRITIS
  4. METHOTREXATE [Concomitant]
  5. METHOTREXATE [Concomitant]
  6. METHOTREXATE [Concomitant]
  7. PREDONIN [Concomitant]
     Indication: RHEUMATOID ARTHRITIS
     Route: 049
  8. SOLU-MEDROL [Concomitant]
     Indication: RHEUMATOID ARTHRITIS
  9. AZULFIDINE [Concomitant]
     Indication: RHEUMATOID ARTHRITIS
     Route: 049
  10. LOXONIN [Concomitant]
     Indication: RHEUMATOID ARTHRITIS
     Route: 049
  11. OPALMON [Concomitant]
     Route: 049
  12. BENET [Concomitant]
     Route: 049
  13. NEUROTROPIN [Concomitant]
     Route: 049
  14. MAGLAX [Concomitant]
     Route: 049
  15. TAKEPRON [Concomitant]
     Route: 049
  16. CEFAMIN [Concomitant]
     Route: 042
  17. MEROPIN [Concomitant]
     Route: 042
  18. DENOSINE [Concomitant]
     Route: 042
  19. PRODIF [Concomitant]
     Route: 042
  20. ALLEGRA [Concomitant]
     Route: 049
  21. CLARITHROMYCIN [Concomitant]
     Route: 049
  22. PL [Concomitant]
     Route: 049

REACTIONS (1)
  - PNEUMOCYSTIS JIROVECI PNEUMONIA [None]
